FAERS Safety Report 7934549-1 (Version None)
Quarter: 2011Q4

REPORT INFORMATION
  Report Type: 
  Country: None (occurrence: None)
  Receive Date: 20111116
  Receipt Date: 20111104
  Transmission Date: 20120403
  Serious: Yes (Other)
  Sender: FDA-Public Use
  Company Number: B0762088A

PATIENT
  Age: 44 Year
  Sex: Male

DRUGS (3)
  1. LOPINAVIR AND RITONAVIR [Suspect]
     Indication: ANTIRETROVIRAL THERAPY
     Dates: start: 20040101
  2. TENOFOVIR DISOPROXIL FUMARATE [Suspect]
     Indication: ANTIRETROVIRAL THERAPY
     Dates: start: 20040101
  3. LAMIVUDINE(PEPFAR) [Suspect]
     Indication: ANTIRETROVIRAL THERAPY
     Dates: start: 20040101

REACTIONS (16)
  - HYPONATRAEMIA [None]
  - COUGH [None]
  - BLOOD HIV RNA INCREASED [None]
  - HILAR LYMPHADENOPATHY [None]
  - GRANULOMA [None]
  - CEREBELLAR SYNDROME [None]
  - ENCEPHALITIS [None]
  - TUBERCULOSIS [None]
  - IMMUNE RECONSTITUTION SYNDROME [None]
  - NERVOUS SYSTEM DISORDER [None]
  - CD4 LYMPHOCYTES DECREASED [None]
  - TREATMENT NONCOMPLIANCE [None]
  - DYSTHYMIC DISORDER [None]
  - CENTRAL NERVOUS SYSTEM NECROSIS [None]
  - MUSCULAR WEAKNESS [None]
  - TOXOPLASMOSIS [None]
